FAERS Safety Report 19181634 (Version 3)
Quarter: 2022Q1

REPORT INFORMATION
  Report Type: Spontaneous
  Country: US (occurrence: US)
  Receive Date: 20210426
  Receipt Date: 20220110
  Transmission Date: 20220423
  Serious: Yes (Hospitalization, Other)
  Sender: FDA-Public Use
  Company Number: US-GLAXOSMITHKLINE-US2021GSK091708

PATIENT
  Sex: Female
  Weight: 65 kg

DRUGS (11)
  1. RANITIDINE HYDROCHLORIDE [Suspect]
     Active Substance: RANITIDINE HYDROCHLORIDE
     Indication: Product used for unknown indication
     Dosage: UNK
     Route: 065
  2. ZANTAC [Suspect]
     Active Substance: RANITIDINE HYDROCHLORIDE
     Indication: Dyspepsia
     Dosage: UNK
     Route: 065
     Dates: start: 199001, end: 201906
  3. ZANTAC [Suspect]
     Active Substance: RANITIDINE HYDROCHLORIDE
     Indication: Hyperchlorhydria
     Dosage: 75 MG (OCCASIONAL)
     Route: 065
     Dates: start: 1995, end: 201906
  4. ZANTAC [Suspect]
     Active Substance: RANITIDINE HYDROCHLORIDE
     Dosage: 150 MG (OCCASIONAL)
     Route: 065
     Dates: start: 1995, end: 201906
  5. ZANTAC [Suspect]
     Active Substance: RANITIDINE HYDROCHLORIDE
     Indication: Dyspepsia
     Dosage: UNK
     Route: 065
     Dates: start: 199001, end: 201906
  6. ZANTAC [Suspect]
     Active Substance: RANITIDINE HYDROCHLORIDE
     Indication: Hyperchlorhydria
     Dosage: 75 MG (OCCASIONAL)
     Route: 065
     Dates: start: 1995, end: 201906
  7. ZANTAC [Suspect]
     Active Substance: RANITIDINE HYDROCHLORIDE
     Dosage: 150  MG (OCCASIONAL)
     Route: 065
     Dates: start: 1995, end: 201906
  8. RANITIDINE HYDROCHLORIDE [Suspect]
     Active Substance: RANITIDINE HYDROCHLORIDE
     Indication: Hyperchlorhydria
     Dosage: 75 MG  (OCCASIONAL)
     Route: 065
     Dates: start: 1995, end: 201906
  9. RANITIDINE HYDROCHLORIDE [Suspect]
     Active Substance: RANITIDINE HYDROCHLORIDE
     Dosage: 150 MG  (OCCASIONAL)
     Route: 065
     Dates: start: 1995, end: 201906
  10. RANITIDINE HYDROCHLORIDE [Suspect]
     Active Substance: RANITIDINE HYDROCHLORIDE
     Indication: Hyperchlorhydria
     Dosage: 75 MG (OCCASIONAL)
     Route: 065
     Dates: start: 1995, end: 201906
  11. RANITIDINE HYDROCHLORIDE [Suspect]
     Active Substance: RANITIDINE HYDROCHLORIDE
     Dosage: 150 MG  (OCCASIONAL)
     Route: 065
     Dates: start: 1995, end: 201906

REACTIONS (10)
  - Breast cancer female [Unknown]
  - Lobular breast carcinoma in situ [Unknown]
  - Neoplasm malignant [Unknown]
  - Lung neoplasm malignant [Unknown]
  - Uterine cancer [Unknown]
  - Invasive lobular breast carcinoma [Unknown]
  - Breast cancer [Unknown]
  - Metastases to lung [Unknown]
  - Breast mass [Unknown]
  - Amastia [Unknown]
